FAERS Safety Report 10586100 (Version 1)
Quarter: 2014Q4

REPORT INFORMATION
  Report Type: Spontaneous
  Country: IT (occurrence: IT)
  Receive Date: 20141115
  Receipt Date: 20141115
  Transmission Date: 20150529
  Serious: Yes (Other)
  Sender: FDA-Public Use
  Company Number: IT-JNJFOC-20141106455

PATIENT
  Age: 17 Year
  Sex: Female

DRUGS (1)
  1. IBUPROFEN. [Suspect]
     Active Substance: IBUPROFEN
     Indication: HEADACHE
     Dosage: AS NECESSARY
     Route: 048
     Dates: start: 20140831, end: 20140831

REACTIONS (1)
  - Allergic oedema [Recovered/Resolved]

NARRATIVE: CASE EVENT DATE: 20140831
